FAERS Safety Report 7753819 (Version 6)
Quarter: 2013Q4

REPORT INFORMATION
  Report Type: Report from Study
  Country: DE (occurrence: DE)
  Receive Date: 20110110
  Receipt Date: 20131220
  Transmission Date: 20140711
  Serious: Yes (Hospitalization)
  Sender: FDA-Public Use
  Company Number: DE-ROCHE-751817

PATIENT
  Age: 72 Year
  Sex: Female
  Weight: 83 kg

DRUGS (16)
  1. BEVACIZUMAB [Suspect]
     Indication: HER-2 POSITIVE BREAST CANCER
     Dosage: DOSE FORM- VIAL, DOSE LEVEL -15 MG/KG
     Route: 042
     Dates: start: 20100928, end: 20101109
  2. BEVACIZUMAB [Suspect]
     Dosage: LAST DOSE PRIOR SAE: 19 OCT 2010, PERMANENTLY DISCONTINUED.
     Route: 042
  3. TRASTUZUMAB [Suspect]
     Indication: HER-2 POSITIVE BREAST CANCER
     Dosage: LOADING DOSE, DOSE FORM- VIAL,
     Route: 042
  4. TRASTUZUMAB [Suspect]
     Dosage: DOSE LEVEL : 6 MG/KG
     Route: 042
     Dates: start: 20100928, end: 20101109
  5. TRASTUZUMAB [Suspect]
     Route: 042
     Dates: start: 20101130, end: 20101229
  6. DOCETAXEL [Suspect]
     Indication: HER-2 POSITIVE BREAST CANCER
     Dosage: DOSE FORM- VIAL, DOSE LEVEL- 75 MG/M2, LAST DOSE ON 21/DEC/2010
     Route: 042
     Dates: start: 20100928, end: 20101109
  7. DOCETAXEL [Suspect]
     Route: 042
     Dates: start: 20101130, end: 20101229
  8. CARBOPLATIN [Suspect]
     Indication: HER-2 POSITIVE BREAST CANCER
     Dosage: DOSE FORM- VIAL, DOSE LEVEL : 6 AUC
     Route: 042
     Dates: start: 20100928, end: 20101109
  9. CARBOPLATIN [Suspect]
     Route: 042
     Dates: start: 20101130, end: 20101229
  10. PANTOPRAZOL [Concomitant]
     Route: 065
  11. PREGABALIN [Concomitant]
     Route: 065
  12. OXYCODONE [Concomitant]
     Route: 065
  13. ACICLOVIR [Concomitant]
     Route: 065
  14. AMOXICILLIN [Concomitant]
     Route: 065
     Dates: start: 20101230
  15. CLAVULANSAURE [Concomitant]
     Route: 065
     Dates: start: 20101230
  16. TELMISARTAN [Concomitant]
     Route: 065
     Dates: start: 200508

REACTIONS (1)
  - Pulmonary embolism [Recovered/Resolved]
